FAERS Safety Report 4899464-9 (Version None)
Quarter: 2006Q1

REPORT INFORMATION
  Report Type: 
  Country: None (occurrence: None)
  Receive Date: 20060118
  Receipt Date: 20050616
  Transmission Date: 20060701
  Serious: No
  Sender: FDA-Public Use
  Company Number: 2005001154

PATIENT
  Sex: Male

DRUGS (4)
  1. TARCEVA [Suspect]
     Indication: PANCREATIC CARCINOMA
     Dosage: 150 MG (QD) ORAL
     Route: 048
     Dates: start: 20050601
  2. HCTZ (HYDROCHOLORTHIAZIDE) [Concomitant]
  3. NORVASC [Concomitant]
  4. PROTONIX [Concomitant]

REACTIONS (1)
  - NIGHT SWEATS [None]
